FAERS Safety Report 14216616 (Version 1)
Quarter: 2017Q4

REPORT INFORMATION
  Report Type: Spontaneous
  Country: US (occurrence: US)
  Receive Date: 20171122
  Receipt Date: 20171122
  Transmission Date: 20180321
  Serious: No
  Sender: FDA-Public Use
  Company Number: US-PFIZER INC-2017499340

PATIENT
  Sex: Female

DRUGS (1)
  1. ATROPINE SULFATE/DIPHENOXYLATE HYDROCHLORIDE [Suspect]
     Active Substance: ATROPINE SULFATE\DIPHENOXYLATE HYDROCHLORIDE
     Indication: COLITIS
     Dosage: UNK
     Dates: start: 201412

REACTIONS (6)
  - Asthenia [Unknown]
  - Abdominal pain [Unknown]
  - Fatigue [Unknown]
  - Visual impairment [Unknown]
  - Drug ineffective [Unknown]
  - Product use issue [Unknown]
